FAERS Safety Report 11806741 (Version 8)
Quarter: 2016Q2

REPORT INFORMATION
  Report Type: Report from Study
  Country: CN (occurrence: CN)
  Receive Date: 20151207
  Receipt Date: 20160621
  Transmission Date: 20160815
  Serious: Yes (Hospitalization)
  Sender: FDA-Public Use
  Company Number: CN-BAYER-2015-480200

PATIENT
  Age: 65 Year
  Sex: Male
  Weight: 86 kg

DRUGS (11)
  1. RADIUM-223 DICHLORIDE [Suspect]
     Active Substance: RADIUM RA-223 DICHLORIDE
     Indication: METASTASES TO BONE
     Dosage: 4010 KBQ, QD
     Route: 042
     Dates: start: 20151013, end: 20151013
  2. PREDNISONE ACETATE [Concomitant]
     Active Substance: PREDNISONE ACETATE
     Indication: PROSTATE CANCER
     Dosage: TOTAL DAILY DOSE 10MG
     Route: 048
     Dates: start: 20151123
  3. RADIUM-223 DICHLORIDE [Suspect]
     Active Substance: RADIUM RA-223 DICHLORIDE
     Indication: HORMONE-REFRACTORY PROSTATE CANCER
     Dosage: 4290 KBQ, QD
     Route: 042
     Dates: start: 20150915, end: 20150915
  4. GLUTATHIONE [Concomitant]
     Active Substance: GLUTATHIONE
     Dosage: TOTAL DAILY DOSE 1.8G
     Route: 042
     Dates: start: 20151123, end: 20151125
  5. DOCETAXEL. [Concomitant]
     Active Substance: DOCETAXEL
     Indication: PROSTATE CANCER
     Dosage: TOTAL DAILY DOSE 140MG
     Route: 042
     Dates: start: 20151123, end: 20151123
  6. RADIUM-223 DICHLORIDE [Suspect]
     Active Substance: RADIUM RA-223 DICHLORIDE
     Indication: HORMONE-REFRACTORY PROSTATE CANCER
     Dosage: 4180 KBQ, QD
     Route: 042
     Dates: start: 20151110, end: 20151110
  7. AMOXICILLIN. [Concomitant]
     Active Substance: AMOXICILLIN
     Indication: HAEMATURIA
     Dosage: DAILY DOSE 1.5 G
     Route: 048
     Dates: start: 20151103
  8. GENSULIN [Concomitant]
     Indication: TYPE 2 DIABETES MELLITUS
     Dosage: 181 U, BID
     Route: 058
     Dates: start: 201312
  9. FENTANYL. [Concomitant]
     Active Substance: FENTANYL
     Indication: BONE PAIN
     Dosage: DAILY DOSE 1 DF
     Route: 003
     Dates: start: 201511
  10. INSULIN [Concomitant]
     Active Substance: INSULIN NOS
     Indication: TYPE 2 DIABETES MELLITUS
     Dosage: TOTAL DAILY DOSE 4 IU
     Route: 042
     Dates: start: 20151118, end: 20151125
  11. OMEPRAZOLE. [Concomitant]
     Active Substance: OMEPRAZOLE
     Indication: GASTRIC DISORDER
     Dosage: TOTAL DAILY DOSE 40MG
     Route: 042
     Dates: start: 20151123, end: 20151125

REACTIONS (1)
  - Haematuria [Recovered/Resolved]

NARRATIVE: CASE EVENT DATE: 20151118
